FAERS Safety Report 8077459-4 (Version None)
Quarter: 2012Q1

REPORT INFORMATION
  Report Type: 
  Country: None (occurrence: None)
  Receive Date: 20120127
  Receipt Date: 20120118
  Transmission Date: 20120608
  Serious: Yes (Hospitalization)
  Sender: FDA-Public Use
  Company Number: FR-BRISTOL-MYERS SQUIBB COMPANY-16359366

PATIENT
  Age: 78 Year
  Sex: Female

DRUGS (7)
  1. ACETAMINOPHEN [Concomitant]
  2. DESLORATADINE [Concomitant]
  3. IRBESARTAN AND HYDROCHLOROTHIAZIDE [Suspect]
     Dosage: FILM COATED TABS,1DF =1TAB,THERAPY DATES:31OCT11
     Route: 048
  4. METFORMIN HCL [Concomitant]
  5. ASPIRIN [Concomitant]
  6. DIAMICRON [Concomitant]
  7. PRAVASTATIN SODIUM [Concomitant]
     Dosage: 1 DF = 20 UNS

REACTIONS (3)
  - CONFUSIONAL STATE [None]
  - CYSTITIS [None]
  - HYPONATRAEMIA [None]
